FAERS Safety Report 21994970 (Version 1)
Quarter: 2023Q1

REPORT INFORMATION
  Report Type: Report from Study
  Country: US (occurrence: US)
  Receive Date: 20230215
  Receipt Date: 20230215
  Transmission Date: 20230418
  Serious: Yes (Other)
  Sender: FDA-Public Use
  Company Number: US-INCYTE CORPORATION-2023IN001407

PATIENT

DRUGS (1)
  1. JAKAFI [Suspect]
     Active Substance: RUXOLITINIB
     Indication: Polycythaemia vera
     Dosage: UNK
     Route: 065
     Dates: start: 20200902

REACTIONS (5)
  - Spinal cord infection [Unknown]
  - Pneumonia [Recovering/Resolving]
  - Muscular weakness [Unknown]
  - Gait inability [Unknown]
  - COVID-19 [Recovering/Resolving]
